FAERS Safety Report 14502332 (Version 1)
Quarter: 2018Q1

REPORT INFORMATION
  Report Type: Spontaneous
  Country: RO (occurrence: RO)
  Receive Date: 20180208
  Receipt Date: 20180208
  Transmission Date: 20180509
  Serious: Yes (Death, Hospitalization, Other)
  Sender: FDA-Public Use
  Company Number: RO-B.I. PHARMACEUTICALS,INC./RIDGEFIELD-2018-BI-006774

PATIENT
  Sex: Female

DRUGS (2)
  1. PRAXBIND [Suspect]
     Active Substance: IDARUCIZUMAB
     Indication: HAEMOGLOBIN ABNORMAL
  2. PRAXBIND [Suspect]
     Active Substance: IDARUCIZUMAB
     Indication: MELAENA
     Route: 065

REACTIONS (3)
  - Death [Fatal]
  - Myocardial infarction [Not Recovered/Not Resolved]
  - Encephalopathy [Not Recovered/Not Resolved]
